FAERS Safety Report 11366671 (Version 1)
Quarter: 2015Q3

REPORT INFORMATION
  Report Type: Spontaneous
  Country: US (occurrence: US)
  Receive Date: 20150811
  Receipt Date: 20150811
  Transmission Date: 20151125
  Serious: No
  Sender: FDA-Public Use
  Company Number: US-ELI_LILLY_AND_COMPANY-US201303001559

PATIENT
  Age: 52 Year
  Sex: Male
  Weight: 78.46 kg

DRUGS (2)
  1. AXIRON [Suspect]
     Active Substance: TESTOSTERONE
     Indication: BLOOD TESTOSTERONE DECREASED
     Dosage: 30 MG, UNDER EACH ARM DAILY
     Route: 061
     Dates: start: 20121228, end: 20130128
  2. AXIRON [Suspect]
     Active Substance: TESTOSTERONE
     Dosage: UNK, UNK
     Dates: start: 20130204

REACTIONS (2)
  - Asthenia [Recovered/Resolved]
  - Hot flush [Recovered/Resolved]
